FAERS Safety Report 7417409-4 (Version None)
Quarter: 2011Q2

REPORT INFORMATION
  Report Type: 
  Country: None (occurrence: None)
  Receive Date: 20110408
  Receipt Date: 20110331
  Transmission Date: 20111010
  Serious: Yes (Disabling, Other)
  Sender: FDA-Public Use
  Company Number: ACO_22857_2011

PATIENT
  Sex: Male

DRUGS (4)
  1. VITAMIN C /00008001/ (ASCORBIC ACID) [Concomitant]
  2. HIPREX [Concomitant]
  3. AMPYRA [Suspect]
     Indication: PRODUCT USED FOR UNKNOWN INDICATION
     Dosage: 10 MG, ORAL
     Route: 048
     Dates: start: 20100813, end: 20110324
  4. CRANBERRY /01512301/ (VACCINIUM MACROCARPON) [Concomitant]

REACTIONS (2)
  - DIPLEGIA [None]
  - URINARY TRACT INFECTION [None]
